FAERS Safety Report 5588469-0 (Version None)
Quarter: 2008Q1

REPORT INFORMATION
  Report Type: 
  Country: None (occurrence: None)
  Receive Date: 20080111
  Receipt Date: 20080108
  Transmission Date: 20080703
  Serious: Yes (Hospitalization)
  Sender: FDA-Public Use
  Company Number: BEWYE361521JAN05

PATIENT
  Sex: Male
  Weight: 60 kg

DRUGS (19)
  1. SIROLIMUS [Suspect]
     Indication: PROPHYLAXIS AGAINST TRANSPLANT REJECTION
     Route: 048
     Dates: start: 20041024, end: 20041024
  2. SIROLIMUS [Suspect]
     Route: 048
     Dates: start: 20041025, end: 20041027
  3. SIROLIMUS [Suspect]
     Route: 048
     Dates: start: 20041028, end: 20041028
  4. SIROLIMUS [Suspect]
     Route: 048
     Dates: start: 20041029, end: 20041105
  5. SIROLIMUS [Suspect]
     Route: 048
     Dates: start: 20041106, end: 20050123
  6. MEDROL [Concomitant]
     Route: 048
     Dates: start: 20041025, end: 20041106
  7. MEDROL [Concomitant]
     Route: 048
     Dates: start: 20041107, end: 20041119
  8. MEDROL [Concomitant]
     Dates: start: 20041120, end: 20041207
  9. MEDROL [Concomitant]
     Dates: start: 20041208, end: 20050118
  10. MEDROL [Concomitant]
     Route: 048
     Dates: start: 20050119, end: 20050123
  11. SOLU-MEDROL [Concomitant]
     Dates: start: 20041023, end: 20041023
  12. SOLU-MEDROL [Concomitant]
     Dates: start: 20041024, end: 20041024
  13. SOLU-MEDROL [Concomitant]
     Dates: start: 20041217, end: 20041219
  14. SOLU-MEDROL [Concomitant]
     Dates: start: 20050119, end: 20050119
  15. SOLU-MEDROL [Concomitant]
     Dates: start: 20050120, end: 20050121
  16. MYCOPHENOLATE MOFETIL [Concomitant]
     Route: 048
     Dates: start: 20041023, end: 20041118
  17. MYCOPHENOLATE MOFETIL [Concomitant]
     Route: 048
     Dates: start: 20041119, end: 20041203
  18. MYCOPHENOLATE MOFETIL [Concomitant]
     Route: 048
     Dates: start: 20041204, end: 20050123
  19. ANTILYMPHOCYTE IMMUNOGLOBULIN (HORSE) [Concomitant]

REACTIONS (1)
  - KIDNEY TRANSPLANT REJECTION [None]
